FAERS Safety Report 8089973-6 (Version None)
Quarter: 2012Q1

REPORT INFORMATION
  Report Type: 
  Country: None (occurrence: None)
  Receive Date: 20120129
  Receipt Date: 20110922
  Transmission Date: 20120608
  Serious: No
  Sender: FDA-Public Use
  Company Number: US-ABBOTT-11P-163-0857269-00

PATIENT
  Age: 54 Year
  Sex: Female

DRUGS (4)
  1. HUMIRA [Suspect]
     Indication: PSORIATIC ARTHROPATHY
     Dates: start: 20110101, end: 20110601
  2. BLOOD PRESSURE MEDICATION [Concomitant]
     Indication: RENAL DISORDER
     Route: 048
  3. BLOOD PRESSURE MEDICINE [Concomitant]
     Indication: PRODUCT USED FOR UNKNOWN INDICATION
     Dosage: 1 PILL
  4. PAXIL [Concomitant]
     Indication: DEPRESSION
     Dosage: 1 PILL

REACTIONS (1)
  - PSORIASIS [None]
